FAERS Safety Report 7240576-2 (Version None)
Quarter: 2011Q1

REPORT INFORMATION
  Report Type: 
  Country: None (occurrence: None)
  Receive Date: 20110124
  Receipt Date: 20110117
  Transmission Date: 20110831
  Serious: Yes (Death, Hospitalization, Other)
  Sender: FDA-Public Use
  Company Number: DE-CELGENEUS-062-50794-11011637

PATIENT

DRUGS (2)
  1. VIDAZA [Suspect]
     Route: 058
  2. SEROTONIN (5HT3) ANTAGONISTS [Concomitant]
     Indication: PREMEDICATION
     Route: 065

REACTIONS (25)
  - ARTHRALGIA [None]
  - FEBRILE INFECTION [None]
  - SKIN IRRITATION [None]
  - PNEUMONIA [None]
  - THROMBOCYTOPENIA [None]
  - INFECTION [None]
  - ALANINE AMINOTRANSFERASE INCREASED [None]
  - BLOOD ALKALINE PHOSPHATASE INCREASED [None]
  - NEUTROPENIA [None]
  - CONSTIPATION [None]
  - INSOMNIA [None]
  - ADVERSE EVENT [None]
  - CARDIAC DISORDER [None]
  - BLOOD BILIRUBIN INCREASED [None]
  - FEBRILE NEUTROPENIA [None]
  - ASPARTATE AMINOTRANSFERASE INCREASED [None]
  - BLOOD CREATININE INCREASED [None]
  - PYREXIA [None]
  - DEATH [None]
  - DISEASE PROGRESSION [None]
  - HAEMORRHAGE [None]
  - DIARRHOEA [None]
  - ARTHRITIS [None]
  - NAUSEA [None]
  - INJECTION SITE ERYTHEMA [None]
